APPROVED DRUG PRODUCT: ERGOTAMINE TARTRATE AND CAFFEINE
Active Ingredient: CAFFEINE; ERGOTAMINE TARTRATE
Strength: 100MG;1MG
Dosage Form/Route: TABLET;ORAL
Application: A040590 | Product #001
Applicant: ANDA REPOSITORY LLC
Approved: Sep 16, 2005 | RLD: No | RS: Yes | Type: RX